FAERS Safety Report 9413759 (Version 1)
Quarter: 2013Q3

REPORT INFORMATION
  Report Type: Spontaneous
  Country: US (occurrence: US)
  Receive Date: 20130722
  Receipt Date: 20130722
  Transmission Date: 20140515
  Serious: Yes (Hospitalization)
  Sender: FDA-Public Use
  Company Number: US-ASTRAZENECA-2012SE15316

PATIENT
  Age: 25922 Day
  Sex: Male

DRUGS (10)
  1. LISINOPRIL (NON-AZ PRODUCT) [Suspect]
  2. LASIX [Suspect]
  3. PLACEBO [Suspect]
     Indication: TYPE 2 DIABETES MELLITUS
     Dosage: DAILY
     Route: 048
     Dates: start: 20101202, end: 20101209
  4. PLACEBO [Suspect]
     Indication: TYPE 2 DIABETES MELLITUS
     Dosage: DAILY
     Route: 048
     Dates: start: 20101210
  5. INSULIN ASPART [Suspect]
     Indication: TYPE 2 DIABETES MELLITUS
  6. INSULIN DETEMIR [Suspect]
     Indication: TYPE 2 DIABETES MELLITUS
  7. ANGIOTENSIN CONVERTING ENZYME [Concomitant]
     Dates: start: 20101201
  8. ASPIRIN [Concomitant]
     Dosage: 1 DF={100 MG
     Dates: start: 20101201
  9. NIACIN [Concomitant]
  10. EZETIMIBE [Concomitant]

REACTIONS (2)
  - Systemic inflammatory response syndrome [Recovered/Resolved]
  - Cellulitis [Recovered/Resolved]
